FAERS Safety Report 16757725 (Version 1)
Quarter: 2019Q3

REPORT INFORMATION
  Report Type: Spontaneous
  Country: US (occurrence: US)
  Receive Date: 20190830
  Receipt Date: 20190830
  Transmission Date: 20191005
  Serious: No
  Sender: FDA-Public Use
  Company Number: US-LEO PHARMA-323892

PATIENT
  Age: 89 Year
  Sex: Female

DRUGS (1)
  1. DAIVOBET [Suspect]
     Active Substance: BETAMETHASONE DIPROPIONATE\CALCIPOTRIENE
     Indication: PSORIASIS
     Dosage: FOR TOPICAL USE
     Route: 061
     Dates: start: 20190815

REACTIONS (2)
  - Product quality issue [Unknown]
  - Hair injury [Not Recovered/Not Resolved]

NARRATIVE: CASE EVENT DATE: 20190815
